FAERS Safety Report 7627558-3 (Version None)
Quarter: 2011Q3

REPORT INFORMATION
  Report Type: 
  Country: None (occurrence: None)
  Receive Date: 20110721
  Receipt Date: 20110718
  Transmission Date: 20111222
  Serious: Yes (Other)
  Sender: FDA-Public Use
  Company Number: US-TEVA-291180USA

PATIENT
  Sex: Female

DRUGS (5)
  1. COLECALCIFEROL [Concomitant]
     Dosage: 2000
     Dates: start: 20110701
  2. EXCEDRIN (MIGRAINE) [Concomitant]
     Dosage: 2000
  3. CYANOCOBALAMIN [Concomitant]
     Dates: start: 20100701
  4. FLINTSTONES [Concomitant]
     Dosage: 2
     Dates: start: 20100701
  5. COPAXONE [Suspect]
     Indication: MULTIPLE SCLEROSIS
     Route: 058
     Dates: start: 20100917

REACTIONS (1)
  - MULTIPLE SCLEROSIS RELAPSE [None]
